FAERS Safety Report 14424968 (Version 1)
Quarter: 2018Q1

REPORT INFORMATION
  Report Type: Other
  Country: FR (occurrence: FR)
  Receive Date: 20180123
  Receipt Date: 20180123
  Transmission Date: 20180509
  Serious: Yes (Hospitalization, Other)
  Sender: FDA-Public Use
  Company Number: FR-TAKEDA-2018TUS001411

PATIENT
  Age: 44 Year
  Sex: Male
  Weight: 96 kg

DRUGS (8)
  1. PENTASA [Concomitant]
     Active Substance: MESALAMINE
     Dosage: UNK G/100 ML, UNK
  2. OROCAL                             /07357001/ [Concomitant]
     Active Substance: CALCIUM CARBONATE
     Dosage: 500 MG, UNK
     Route: 048
  3. FOSAVANCE [Concomitant]
     Active Substance: ALENDRONATE SODIUM\CHOLECALCIFEROL
     Dosage: UNK
     Route: 048
  4. ENTYVIO [Suspect]
     Active Substance: VEDOLIZUMAB
     Indication: COLITIS
     Dosage: 300 MG, UNK
     Route: 041
  5. PREDNISOLONE. [Concomitant]
     Active Substance: PREDNISOLONE
     Dosage: UNK
     Route: 048
  6. PYOSTACINE [Concomitant]
     Active Substance: PRISTINAMYCIN
     Indication: INFLUENZA LIKE ILLNESS
     Dosage: UNK
     Route: 048
  7. METOJECT [Suspect]
     Active Substance: METHOTREXATE SODIUM
     Indication: COLITIS
     Dosage: 25 MG, 1/WEEK
     Route: 058
     Dates: start: 20161201
  8. DIFFU K [Concomitant]
     Active Substance: POTASSIUM CHLORIDE
     Dosage: UNK
     Route: 048

REACTIONS (2)
  - Interstitial lung disease [Not Recovered/Not Resolved]
  - Condition aggravated [Not Recovered/Not Resolved]

NARRATIVE: CASE EVENT DATE: 20170413
